FAERS Safety Report 16981112 (Version 1)
Quarter: 2019Q4

REPORT INFORMATION
  Report Type: Report from Study
  Country: US (occurrence: US)
  Receive Date: 20191031
  Receipt Date: 20191031
  Transmission Date: 20200122
  Serious: Yes (Death, Hospitalization)
  Sender: FDA-Public Use
  Company Number: US-TAKEDA-2019TUS037961

PATIENT
  Age: 63 Year
  Sex: Male

DRUGS (1)
  1. PONATINIB [Suspect]
     Active Substance: PONATINIB
     Indication: ACUTE LYMPHOCYTIC LEUKAEMIA
     Dosage: 45 MILLIGRAM, QD
     Route: 048
     Dates: start: 20190530

REACTIONS (8)
  - Blood pressure abnormal [Unknown]
  - Decreased appetite [Unknown]
  - Death [Fatal]
  - Taste disorder [Unknown]
  - Rash [Unknown]
  - Dysphonia [Unknown]
  - Hepatic enzyme increased [Unknown]
  - Palpitations [Unknown]

NARRATIVE: CASE EVENT DATE: 20191025
